FAERS Safety Report 9365588 (Version 1)
Quarter: 2013Q2

REPORT INFORMATION
  Report Type: Spontaneous
  Country: US (occurrence: None)
  Receive Date: 20130624
  Receipt Date: 20130624
  Transmission Date: 20140414
  Serious: Yes (Hospitalization)
  Sender: FDA-Public Use
  Company Number: None

PATIENT
  Age: 53 Year
  Sex: Female

DRUGS (1)
  1. EXEMESTANE 25MG GRE [Suspect]
     Indication: BREAST CANCER
     Dosage: 25MG DAILY ORAL
     Route: 048
     Dates: start: 20130610, end: 20130614

REACTIONS (6)
  - Abdominal distension [None]
  - Dyspnoea [None]
  - Swelling [None]
  - Muscle spasms [None]
  - Swelling face [None]
  - Rash [None]
